FAERS Safety Report 14229216 (Version 5)
Quarter: 2018Q1

REPORT INFORMATION
  Report Type: Spontaneous
  Country: US (occurrence: US)
  Receive Date: 20171128
  Receipt Date: 20180208
  Transmission Date: 20180508
  Serious: Yes (Life-Threatening, Hospitalization, Other)
  Sender: FDA-Public Use
  Company Number: US-AMGEN-USASP2017176922

PATIENT
  Age: 64 Year
  Sex: Female
  Weight: 67.35 kg

DRUGS (64)
  1. ZYRTEC [Concomitant]
     Active Substance: CETIRIZINE HYDROCHLORIDE
  2. LISINOPRIL. [Concomitant]
     Active Substance: LISINOPRIL
     Dosage: 5 MG, QD
     Route: 058
  3. GLUCOSAMINE CHONDROITIN [Concomitant]
     Active Substance: CHONDROITIN SULFATE (BOVINE)\GLUCOSAMINE HYDROCHLORIDE
     Dosage: UNK
  4. VICOPROFEN [Concomitant]
     Active Substance: HYDROCODONE BITARTRATE\IBUPROFEN
     Dosage: UNK
  5. FLEXERIL [Concomitant]
     Active Substance: CYCLOBENZAPRINE HYDROCHLORIDE
     Dosage: UNK
  6. MTX [Concomitant]
     Active Substance: METHOTREXATE SODIUM
     Indication: RHEUMATOID ARTHRITIS
     Dosage: UNK
     Route: 065
  7. PREDNISONE. [Concomitant]
     Active Substance: PREDNISONE
     Dosage: 5 MG, BID
     Route: 048
  8. NEXIUM [Concomitant]
     Active Substance: ESOMEPRAZOLE MAGNESIUM
  9. CYTOTEC [Concomitant]
     Active Substance: MISOPROSTOL
  10. ETODOLAC. [Concomitant]
     Active Substance: ETODOLAC
     Dosage: 500 MG, BID
     Route: 048
  11. ASPIRIN. [Concomitant]
     Active Substance: ASPIRIN
     Dosage: 81 MG, QD
  12. ESTRACE [Concomitant]
     Active Substance: ESTRADIOL
     Dosage: 1 G, QWK
     Route: 067
  13. COMPAZINE [Concomitant]
     Active Substance: PROCHLORPERAZINE MALEATE
     Dosage: 10 MG, TID
     Route: 048
  14. TYLENOL EXTRA STRENGTH [Concomitant]
     Active Substance: ACETAMINOPHEN
     Dosage: UNK UNK, Q6H
     Route: 048
  15. CRANBERRY EXTRACT [Concomitant]
     Active Substance: CRANBERRY JUICE
     Dosage: 300 MG, UNK
  16. ENBREL [Suspect]
     Active Substance: ETANERCEPT
     Indication: RHEUMATOID ARTHRITIS
     Dosage: 50 MG, QWK
     Route: 058
     Dates: start: 20110105, end: 20111114
  17. PLAQUENIL [Suspect]
     Active Substance: HYDROXYCHLOROQUINE SULFATE
     Dosage: 600 MG, QD
     Route: 065
     Dates: start: 20120314
  18. TRAZODONE [Concomitant]
     Active Substance: TRAZODONE HYDROCHLORIDE
     Dosage: 75 MG, QHS
     Route: 048
  19. SKELAXIN [Concomitant]
     Active Substance: METAXALONE
     Dosage: 1 DF, BID/ PRN
  20. SYNVISC-ONE [Concomitant]
     Active Substance: HYALURONATE SODIUM
     Dosage: UNK
     Dates: start: 20100430
  21. SYNVISC-ONE [Concomitant]
     Active Substance: HYALURONATE SODIUM
     Dosage: UNK
     Dates: start: 20120404
  22. ZINC SULFATE [Concomitant]
     Active Substance: ZINC SULFATE\ZINC SULFATE ANHYDROUS
     Dosage: 220 MG, UNK
  23. POLYETHYLENE GLYCOL 3350. [Concomitant]
     Active Substance: POLYETHYLENE GLYCOL 3350
     Dosage: 17 G, QD
     Route: 048
  24. CALCIUM + VITAMIN D [Concomitant]
     Active Substance: CALCIUM\VITAMIN D
     Dosage: 600 MG, UNK
  25. ASA [Concomitant]
     Active Substance: ASPIRIN
     Dosage: UNK
  26. URSODIOL. [Suspect]
     Active Substance: URSODIOL
     Indication: WEIGHT DECREASED
     Dosage: 1500 MG, UNK
     Route: 048
  27. NASONEX [Concomitant]
     Active Substance: MOMETASONE FUROATE
  28. FISH OIL [Concomitant]
     Active Substance: FISH OIL
  29. ARAVA [Concomitant]
     Active Substance: LEFLUNOMIDE
     Dosage: UNK
  30. SYNVISC [Concomitant]
     Active Substance: HYALURONATE SODIUM
     Dosage: UNK
     Dates: start: 201608, end: 201608
  31. ALPRAZOLAM. [Concomitant]
     Active Substance: ALPRAZOLAM
     Dosage: 0.25 MG, UNK
  32. CITRACAL [Concomitant]
     Active Substance: CALCIUM CITRATE
  33. HUMIRA [Concomitant]
     Active Substance: ADALIMUMAB
     Indication: RHEUMATOID ARTHRITIS
     Dosage: UNK
     Route: 065
  34. VITAMIN B12 [Concomitant]
     Active Substance: CYANOCOBALAMIN
  35. REFRESH LIQUIGEL [Concomitant]
     Active Substance: CARBOXYMETHYLCELLULOSE SODIUM
     Dosage: UNK
  36. MOMETASONE [Concomitant]
     Active Substance: MOMETASONE
     Dosage: 100 MUG, BID
     Route: 045
  37. COMPAZINE [Concomitant]
     Active Substance: PROCHLORPERAZINE MALEATE
     Dosage: 10 MG, BID
     Route: 048
  38. ARTHROTEC [Concomitant]
     Active Substance: DICLOFENAC SODIUM\MISOPROSTOL
  39. MVI [Concomitant]
     Active Substance: VITAMINS
     Dosage: UNK
  40. VIOXX [Concomitant]
     Active Substance: ROFECOXIB
     Dosage: UNK
  41. PLAQUENIL [Suspect]
     Active Substance: HYDROXYCHLOROQUINE SULFATE
     Indication: RHEUMATOID ARTHRITIS
     Dosage: UNK
     Route: 065
     Dates: start: 2008
  42. PREDNISONE. [Concomitant]
     Active Substance: PREDNISONE
     Dosage: 15 MG, QD
  43. XELJANZ XR [Concomitant]
     Active Substance: TOFACITINIB CITRATE
     Dosage: 11 MG, QD
     Route: 048
  44. WELCHOL [Concomitant]
     Active Substance: COLESEVELAM HYDROCHLORIDE
     Dosage: 1875 MG, BID
     Route: 048
  45. CALCIUM [Concomitant]
     Active Substance: CALCIUM
  46. SYNVISC [Concomitant]
     Active Substance: HYALURONATE SODIUM
     Dosage: UNK
     Dates: start: 20160203, end: 20160203
  47. SYNVISC [Concomitant]
     Active Substance: HYALURONATE SODIUM
     Dosage: UNK
     Dates: start: 20170822
  48. TOPROL XL [Concomitant]
     Active Substance: METOPROLOL SUCCINATE
     Dosage: 25 MG, QD
     Route: 048
  49. AZOR [Concomitant]
     Active Substance: AMLODIPINE BESYLATE\OLMESARTAN MEDOXOMIL
     Dosage: 10/40 MG, AS NECESSARY
  50. FOSAMAX [Suspect]
     Active Substance: ALENDRONATE SODIUM
     Indication: PAIN IN JAW
     Dosage: UNK
     Route: 065
     Dates: start: 201201, end: 201309
  51. PLAQUENIL [Suspect]
     Active Substance: HYDROXYCHLOROQUINE SULFATE
     Dosage: UNK
     Route: 065
     Dates: start: 2009
  52. SYNVISC-ONE [Concomitant]
     Active Substance: HYALURONATE SODIUM
     Dosage: UNK
     Dates: start: 20110524
  53. ALLERGY RELIEF [Concomitant]
     Dosage: 10 MG, UNK
  54. PRILOSEC [Concomitant]
     Active Substance: OMEPRAZOLE MAGNESIUM
     Dosage: 40 MG, QD
     Route: 048
  55. MISOPROSTOL. [Concomitant]
     Active Substance: MISOPROSTOL
     Dosage: 100 MUG, BID
     Route: 048
  56. REMICADE [Concomitant]
     Active Substance: INFLIXIMAB
     Indication: RHEUMATOID ARTHRITIS
     Dosage: UNK
     Route: 065
  57. PREDNISONE. [Concomitant]
     Active Substance: PREDNISONE
     Indication: RHEUMATOID ARTHRITIS
     Dosage: 10 MG, QD
     Route: 048
     Dates: start: 20131120
  58. BENICAR HCT [Concomitant]
     Active Substance: HYDROCHLOROTHIAZIDE\OLMESARTAN MEDOXOMIL
     Dosage: 40/12.5
  59. MILK OF MAGNESIA [Concomitant]
     Active Substance: MAGNESIUM HYDROXIDE
     Dosage: 2400 MG, QD
     Route: 048
  60. MICONAZOLE NITRATE. [Concomitant]
     Active Substance: MICONAZOLE NITRATE
     Dosage: UNK UNK, BID
     Route: 061
  61. ASPIR 81 [Concomitant]
     Dosage: 81 MG, QD
     Route: 048
  62. LIDOCAINE. [Concomitant]
     Active Substance: LIDOCAINE
     Dosage: UNK UNK, AS NECESSARY
  63. VESICARE [Concomitant]
     Active Substance: SOLIFENACIN SUCCINATE
     Dosage: UNK
     Route: 048
  64. PERCOCET [Concomitant]
     Active Substance: ACETAMINOPHEN\OXYCODONE HYDROCHLORIDE
     Dosage: UNK

REACTIONS (38)
  - Pelvic fracture [Unknown]
  - Osteoarthritis [Unknown]
  - Interstitial lung disease [Unknown]
  - Peripheral nerve lesion [Unknown]
  - Anxiety [Unknown]
  - Ocular hyperaemia [Unknown]
  - Feeling jittery [Unknown]
  - Cushingoid [Unknown]
  - Urinary tract infection [Unknown]
  - Neuropathy peripheral [Unknown]
  - Sleep disorder [Unknown]
  - Respiratory failure [Recovered/Resolved]
  - Aortic valve stenosis [Unknown]
  - Drug hypersensitivity [Unknown]
  - Carpal tunnel syndrome [Unknown]
  - Dry eye [Unknown]
  - Increased appetite [Unknown]
  - Spinal column stenosis [Unknown]
  - Constipation [Unknown]
  - Pulmonary mass [Unknown]
  - Rotator cuff syndrome [Unknown]
  - Syncope [Unknown]
  - Pain in jaw [Recovered/Resolved]
  - Injury [Unknown]
  - Pulmonary arterial hypertension [Unknown]
  - Organising pneumonia [Unknown]
  - Weight decreased [Unknown]
  - Pruritus [Unknown]
  - Road traffic accident [Unknown]
  - Drug intolerance [Unknown]
  - Therapeutic procedure [Unknown]
  - Intervertebral disc degeneration [Unknown]
  - Depression [Unknown]
  - Alopecia [Unknown]
  - Pneumonitis [Recovered/Resolved]
  - Rheumatoid arthritis [Unknown]
  - Deafness [Not Recovered/Not Resolved]
  - Ill-defined disorder [Unknown]

NARRATIVE: CASE EVENT DATE: 2011
